FAERS Safety Report 9919909 (Version 1)
Quarter: 2014Q1

REPORT INFORMATION
  Report Type: Spontaneous
  Country: FR (occurrence: FR)
  Receive Date: 20140224
  Receipt Date: 20140224
  Transmission Date: 20141002
  Serious: Yes (Hospitalization)
  Sender: FDA-Public Use
  Company Number: FR-TEVA-464481ISR

PATIENT
  Age: 63 Year
  Sex: Male

DRUGS (14)
  1. DOXORUBICIN TEVA [Suspect]
     Indication: HEPATOCELLULAR CARCINOMA
     Dates: start: 20100825
  2. LIPIODOL [Suspect]
     Route: 013
     Dates: start: 20100825
  3. ATROVENT [Concomitant]
  4. BRICANYL [Concomitant]
  5. CORDARONE [Concomitant]
  6. HEMIGOXINE [Concomitant]
  7. INEXIUM [Concomitant]
  8. KENZEN [Concomitant]
  9. LAMICTAL [Concomitant]
  10. LASILIX [Concomitant]
  11. SERETIDE DISKUS [Concomitant]
  12. SOLUPRED [Concomitant]
  13. PREVISCAN [Concomitant]
  14. CALCIPARINE [Concomitant]

REACTIONS (4)
  - Dyspnoea [Recovered/Resolved]
  - Oxygen saturation decreased [Recovered/Resolved]
  - Resuscitation [Recovered/Resolved]
  - Respiratory acidosis [Recovered/Resolved]
